FAERS Safety Report 8104869 (Version 2)
Quarter: 2013Q1

REPORT INFORMATION
  Report Type: Spontaneous
  Country: TW (occurrence: TW)
  Receive Date: 20110824
  Receipt Date: 20130301
  Transmission Date: 20140127
  Serious: Yes (Hospitalization, Other)
  Sender: FDA-Public Use
  Company Number: PHHY2011TW74266

PATIENT
  Age: 26 Year
  Sex: Male

DRUGS (3)
  1. ZOLPIDEM [Suspect]
     Dosage: 10 MG, UNK
  2. ZOLPIDEM [Suspect]
     Dosage: 200 TO 300 MG, PER DAY
  3. ZOLPIDEM [Suspect]
     Dosage: 40 DF, UNK

REACTIONS (14)
  - Sinus tachycardia [Unknown]
  - Chest discomfort [Unknown]
  - Borderline personality disorder [Unknown]
  - Delirium [Unknown]
  - Movement disorder [Unknown]
  - Suicide attempt [Unknown]
  - Anxiety [Unknown]
  - Agitation [Unknown]
  - Confusional state [Unknown]
  - Insomnia [Unknown]
  - Intentional self-injury [Unknown]
  - Drug dependence [Unknown]
  - Overdose [Unknown]
  - Drug withdrawal syndrome [Unknown]
